FAERS Safety Report 6157196-3 (Version None)
Quarter: 2009Q2

REPORT INFORMATION
  Report Type: 
  Country: None (occurrence: None)
  Receive Date: 20090413
  Receipt Date: 20090327
  Transmission Date: 20091009
  Serious: Yes (Hospitalization)
  Sender: FDA-Public Use
  Company Number: 000614

PATIENT
  Age: 80 Year
  Sex: Male

DRUGS (6)
  1. UNIKET (UNIKET) [Suspect]
     Indication: HYPERTENSION
     Dosage: (120 MG ORAL)
     Route: 048
     Dates: start: 20000101
  2. ENALAPRIL MALEATE [Suspect]
     Indication: HYPERTENSION
     Dosage: (20 MG ORAL)
     Route: 048
     Dates: start: 20000101
  3. NORVAS (NORVAS) [Suspect]
     Indication: HYPERTENSION
     Dosage: (10 MG ORAL)
     Route: 048
     Dates: start: 20000101
  4. TRANGOREX (TRANGOREX) [Suspect]
     Indication: ATRIAL FIBRILLATION
     Dosage: (200 MG ORAL)
     Route: 048
     Dates: start: 20000101
  5. AAS (AAS) [Suspect]
     Indication: CARDIOVASCULAR EVENT PROPHYLAXIS
     Dosage: (10 MG ORAL)
     Route: 048
     Dates: start: 20000101
  6. TORSEMIDE [Suspect]
     Indication: HYPERTENSION
     Dosage: (10 MG ORAL)
     Route: 048
     Dates: start: 20000101

REACTIONS (4)
  - ATRIOVENTRICULAR BLOCK COMPLETE [None]
  - BLOOD CREATININE INCREASED [None]
  - BLOOD SODIUM INCREASED [None]
  - BLOOD UREA INCREASED [None]
